FAERS Safety Report 7622482-4 (Version None)
Quarter: 2011Q3

REPORT INFORMATION
  Report Type: 
  Country: None (occurrence: None)
  Receive Date: 20110712
  Receipt Date: 20110628
  Transmission Date: 20111222
  Serious: Yes (Death, Hospitalization, Other)
  Sender: FDA-Public Use
  Company Number: WAES 1106USA04373

PATIENT
  Age: 71 Year
  Sex: Male

DRUGS (1)
  1. CAP VORINOSTAT [Suspect]
     Indication: MULTIPLE MYELOMA
     Dosage: 300 MG/DAILY PO
     Route: 048
     Dates: start: 20100820, end: 20110620

REACTIONS (1)
  - RESPIRATORY TRACT INFECTION [None]
